FAERS Safety Report 10207590 (Version 1)
Quarter: 2014Q2

REPORT INFORMATION
  Report Type: Spontaneous
  Country: FR (occurrence: FR)
  Receive Date: 20140530
  Receipt Date: 20140530
  Transmission Date: 20141212
  Serious: Yes (Other)
  Sender: FDA-Public Use
  Company Number: FR-ASTELLAS-2014EU006632

PATIENT
  Age: 49 Year
  Sex: Female

DRUGS (4)
  1. TACROLIMUS [Suspect]
     Indication: IMMUNOSUPPRESSION
     Dosage: UNK, UNKNOWN FREQ.
     Route: 065
  2. AZATHIOPRINE [Suspect]
     Indication: IMMUNOSUPPRESSION
     Dosage: UNK, UNKNOWN FREQ.
     Route: 065
  3. RITUXIMAB [Suspect]
     Indication: IMMUNOSUPPRESSION
     Dosage: 1000 MG, UNK
     Route: 042
  4. RITUXIMAB [Suspect]
     Dosage: 1000 MG, UNK
     Route: 042

REACTIONS (3)
  - Henoch-Schonlein purpura [Recovering/Resolving]
  - Gastroenteritis norovirus [Recovered/Resolved]
  - Immunoglobulins decreased [Unknown]
